FAERS Safety Report 17136283 (Version 2)
Quarter: 2019Q4

REPORT INFORMATION
  Report Type: Spontaneous
  Country: GR (occurrence: GR)
  Receive Date: 20191210
  Receipt Date: 20191218
  Transmission Date: 20200122
  Serious: Yes (Hospitalization)
  Sender: FDA-Public Use
  Company Number: GR-ASTRAZENECA-2019SF73791

PATIENT
  Age: 52 Year
  Sex: Male

DRUGS (4)
  1. BRILIQUE [Suspect]
     Active Substance: TICAGRELOR
     Indication: ACUTE MYOCARDIAL INFARCTION
     Route: 048
  2. ASPIRIN. [Concomitant]
     Active Substance: ASPIRIN
  3. CRESTOR [Concomitant]
     Active Substance: ROSUVASTATIN CALCIUM
     Dosage: SINCE THREE (3) WEEKS AGO
  4. THYROHORMONE [Concomitant]
     Active Substance: LEVOTHYROXINE SODIUM

REACTIONS (5)
  - Dizziness [Recovered/Resolved]
  - Tachycardia [Recovered/Resolved]
  - Dyspnoea [Not Recovered/Not Resolved]
  - Hypertension [Recovered/Resolved]
  - Lip dry [Recovered/Resolved]
